FAERS Safety Report 21579512 (Version 1)
Quarter: 2022Q4

REPORT INFORMATION
  Report Type: Spontaneous
  Country: AR (occurrence: AR)
  Receive Date: 20221110
  Receipt Date: 20221110
  Transmission Date: 20230113
  Serious: Yes (Other)
  Sender: FDA-Public Use
  Company Number: AR-PFIZER INC-PV202200048812

PATIENT
  Age: 71 Year
  Sex: Male

DRUGS (2)
  1. SUTENT [Suspect]
     Active Substance: SUNITINIB MALATE
     Indication: Metastatic renal cell carcinoma
     Dosage: 25 MG, CYCLIC (DAILY 2/1 SCHEME)
     Dates: start: 20220804
  2. SUTENT [Suspect]
     Active Substance: SUNITINIB MALATE
     Dosage: 50 MG, CYCLIC (DAILY 2/1 SCHEME)

REACTIONS (10)
  - Abdominal infection [Unknown]
  - Stomatitis [Unknown]
  - Epistaxis [Unknown]
  - Nasal oedema [Unknown]
  - Oedema [Unknown]
  - Swelling face [Not Recovered/Not Resolved]
  - Pharyngeal swelling [Unknown]
  - Alopecia [Unknown]
  - Hernia [Unknown]
  - Cough [Unknown]

NARRATIVE: CASE EVENT DATE: 20220701
